FAERS Safety Report 5993734-9 (Version None)
Quarter: 2008Q4

REPORT INFORMATION
  Report Type: 
  Country: None (occurrence: None)
  Receive Date: 20081212
  Receipt Date: 20081201
  Transmission Date: 20090506
  Serious: Yes (Hospitalization, Other)
  Sender: FDA-Public Use
  Company Number: US-ELI_LILLY_AND_COMPANY-US200811005483

PATIENT
  Sex: Female

DRUGS (7)
  1. FORTEO [Suspect]
     Indication: OSTEOPOROSIS
     Dosage: UNK, UNK
     Dates: start: 20081107, end: 20081122
  2. FORTEO [Suspect]
     Dosage: UNK, UNK
     Dates: start: 20081101
  3. SYNTHROID [Concomitant]
  4. PRILOSEC [Concomitant]
  5. VITAMIN D [Concomitant]
     Dosage: 50000 U, MONTHLY (1/M)
  6. CALCIUM [Concomitant]
  7. ATENOLOL [Concomitant]
     Dosage: 25 MG, UNK

REACTIONS (11)
  - ABDOMINAL DISCOMFORT [None]
  - ASTHENIA [None]
  - BLOOD POTASSIUM DECREASED [None]
  - DEHYDRATION [None]
  - DIARRHOEA [None]
  - HEADACHE [None]
  - HYPERTENSION [None]
  - MALAISE [None]
  - MUSCLE SPASMS [None]
  - PERIPHERAL COLDNESS [None]
  - VOMITING [None]
